FAERS Safety Report 8207741-9 (Version None)
Quarter: 2012Q1

REPORT INFORMATION
  Report Type: 
  Country: None (occurrence: None)
  Receive Date: 20120314
  Receipt Date: 20120313
  Transmission Date: 20120608
  Serious: Yes (Death)
  Sender: FDA-Public Use
  Company Number: US-BAYER-2012-024534

PATIENT
  Age: 57 Year
  Sex: Male

DRUGS (8)
  1. PROVIGIL [Concomitant]
  2. DIOVAN [Concomitant]
  3. FLEXERIL [Concomitant]
  4. STRESSTABS [Concomitant]
  5. BACLOFEN [Concomitant]
  6. XANAX [Concomitant]
  7. BETASERON [Suspect]
  8. HYDROCHLOROTHIAZIDE [Concomitant]

REACTIONS (1)
  - DEATH [None]
